FAERS Safety Report 15850243 (Version 2)
Quarter: 2019Q1

REPORT INFORMATION
  Report Type: Spontaneous
  Country: US (occurrence: US)
  Receive Date: 20190121
  Receipt Date: 20190320
  Transmission Date: 20190417
  Serious: No
  Sender: FDA-Public Use
  Company Number: US-PFIZER INC-2019026131

PATIENT
  Age: 72 Year
  Sex: Male

DRUGS (2)
  1. XELJANZ XR [Suspect]
     Active Substance: TOFACITINIB CITRATE
     Dosage: 11 MG, DAILY
     Dates: start: 201702
  2. PREDNISONE. [Suspect]
     Active Substance: PREDNISONE
     Dosage: UNK, DAILY [5-10 MG DAILY]
     Dates: start: 201702

REACTIONS (4)
  - Musculoskeletal pain [Unknown]
  - Computerised tomogram thorax abnormal [Unknown]
  - Back pain [Unknown]
  - Arthralgia [Not Recovered/Not Resolved]
